FAERS Safety Report 23004071 (Version 2)
Quarter: 2023Q4

REPORT INFORMATION
  Report Type: Report from Study
  Country: BR (occurrence: BR)
  Receive Date: 20230928
  Receipt Date: 20231017
  Transmission Date: 20240109
  Serious: Yes (Hospitalization, Other)
  Sender: FDA-Public Use
  Company Number: BR-002147023-NVSC2023BR147965

PATIENT
  Age: 65 Year
  Sex: Female

DRUGS (1)
  1. KISQALI [Suspect]
     Active Substance: RIBOCICLIB
     Indication: Breast cancer
     Dosage: UNK
     Route: 065

REACTIONS (8)
  - Seizure [Recovered/Resolved]
  - Headache [Recovered/Resolved]
  - Platelet count decreased [Recovered/Resolved]
  - Neutropenia [Unknown]
  - Leukopenia [Unknown]
  - Fear of weight gain [Unknown]
  - Blood creatinine abnormal [Unknown]
  - Dysarthria [Unknown]

NARRATIVE: CASE EVENT DATE: 20230901
